FAERS Safety Report 10349707 (Version 1)
Quarter: 2014Q3

REPORT INFORMATION
  Report Type: Spontaneous
  Country: US (occurrence: None)
  Receive Date: 20140728
  Receipt Date: 20140728
  Transmission Date: 20150326
  Serious: Yes (Other)
  Sender: FDA-Public Use
  Company Number: None

PATIENT
  Age: 46 Year
  Sex: Male
  Weight: 81.65 kg

DRUGS (1)
  1. OXYCODONE [Suspect]
     Active Substance: OXYCODONE
     Indication: PAIN MANAGEMENT
     Dosage: 1 PILL TWICE DAILY TAKEN BY MOUTH
     Route: 048

REACTIONS (5)
  - Nausea [None]
  - Drug ineffective [None]
  - Vision blurred [None]
  - Product substitution issue [None]
  - Malaise [None]

NARRATIVE: CASE EVENT DATE: 20140714
